FAERS Safety Report 6971267-0 (Version None)
Quarter: 2010Q3

REPORT INFORMATION
  Report Type: 
  Country: None (occurrence: None)
  Receive Date: 20100908
  Receipt Date: 20100830
  Transmission Date: 20110219
  Serious: Yes (Hospitalization)
  Sender: FDA-Public Use
  Company Number: US-WATSON-2010-11062

PATIENT
  Sex: Female
  Weight: 56.689 kg

DRUGS (7)
  1. CYCLOBENZAPRINE HYDROCHLORIDE [Suspect]
     Indication: MYALGIA
     Dosage: UNK (10 MG)
     Route: 048
  2. CYCLOBENZAPRINE HYDROCHLORIDE [Suspect]
     Indication: BACK PAIN
  3. CYCLOBENZAPRINE HYDROCHLORIDE [Suspect]
     Indication: ARTHRALGIA
  4. NAPROSYN [Concomitant]
     Indication: PRODUCT USED FOR UNKNOWN INDICATION
     Dosage: UNKNOWN
     Route: 048
  5. SIMVASTATIN [Concomitant]
     Indication: PRODUCT USED FOR UNKNOWN INDICATION
     Dosage: UNK
     Route: 048
  6. ACTONEL [Concomitant]
     Indication: PRODUCT USED FOR UNKNOWN INDICATION
     Dosage: UNK
     Route: 048
  7. CALCIUM WITH VITAMIN D             /00944201/ [Concomitant]
     Indication: PRODUCT USED FOR UNKNOWN INDICATION
     Dosage: UNK
     Route: 048

REACTIONS (4)
  - CONFUSIONAL STATE [None]
  - ENCEPHALOPATHY [None]
  - HALLUCINATION [None]
  - OVERDOSE [None]
